FAERS Safety Report 8427070-8 (Version None)
Quarter: 2012Q2

REPORT INFORMATION
  Report Type: 
  Country: None (occurrence: None)
  Receive Date: 20120611
  Receipt Date: 20120605
  Transmission Date: 20120825
  Serious: Yes (Hospitalization)
  Sender: FDA-Public Use
  Company Number: GR-ROCHE-1075542

PATIENT
  Age: 26 Year
  Sex: Male

DRUGS (2)
  1. ROCEPHIN [Suspect]
     Indication: ILL-DEFINED DISORDER
  2. VIBRAMYCIN [Concomitant]
     Indication: ILL-DEFINED DISORDER

REACTIONS (2)
  - URINARY TRACT INFECTION [None]
  - PYREXIA [None]
